FAERS Safety Report 8214836-2 (Version None)
Quarter: 2012Q1

REPORT INFORMATION
  Report Type: 
  Country: None (occurrence: None)
  Receive Date: 20120316
  Receipt Date: 20120307
  Transmission Date: 20120608
  Serious: Yes (Hospitalization)
  Sender: FDA-Public Use
  Company Number: JP-JNJFOC-20120305944

PATIENT
  Sex: Male
  Weight: 70 kg

DRUGS (7)
  1. QUAZEPAM [Concomitant]
     Indication: SCHIZOPHRENIA
     Dates: start: 20110603
  2. INVEGA [Suspect]
     Indication: SCHIZOPHRENIA
     Route: 048
     Dates: start: 20110704
  3. DEPAKENE [Concomitant]
     Route: 048
     Dates: start: 20110603, end: 20110904
  4. SENNOSIDE [Concomitant]
     Indication: CONSTIPATION
  5. INVEGA [Suspect]
     Route: 048
     Dates: start: 20110608, end: 20110610
  6. INVEGA [Suspect]
     Route: 048
     Dates: start: 20110611, end: 20110703
  7. DEPAKENE [Concomitant]
     Indication: SCHIZOPHRENIA
     Route: 048
     Dates: start: 20110905

REACTIONS (2)
  - INAPPROPRIATE AFFECT [None]
  - INSOMNIA [None]
